FAERS Safety Report 8914541 (Version 2)
Quarter: 2012Q4

REPORT INFORMATION
  Report Type: Report from Study
  Country: NZ (occurrence: NZ)
  Receive Date: 20121119
  Receipt Date: 20121203
  Transmission Date: 20130627
  Serious: Yes (Death)
  Sender: FDA-Public Use
  Company Number: NZ-ROCHE-1156366

PATIENT
  Sex: Female

DRUGS (3)
  1. BEVACIZUMAB [Suspect]
     Indication: BREAST CANCER
     Dosage: cycle one
     Route: 042
     Dates: start: 20120207, end: 201204
  2. CISPLATIN [Concomitant]
     Indication: BREAST CANCER
     Route: 065
     Dates: end: 201204
  3. GEMCITABINE [Concomitant]
     Indication: BREAST CANCER
     Route: 065
     Dates: end: 201204

REACTIONS (1)
  - Disease progression [Fatal]
